FAERS Safety Report 5125622-4 (Version None)
Quarter: 2006Q4

REPORT INFORMATION
  Report Type: 
  Country: None (occurrence: None)
  Receive Date: 20061006
  Receipt Date: 20060920
  Transmission Date: 20070319
  Serious: Yes (Hospitalization)
  Sender: FDA-Public Use
  Company Number: REM_00243_2006

PATIENT
  Age: 13 Year
  Sex: Male
  Weight: 26 kg

DRUGS (9)
  1. REMODULIN [Suspect]
     Indication: PULMONARY HYPERTENSION
     Dosage: 55 NG/KG/MIN CONTINOUS IV
     Route: 042
     Dates: start: 20050801
  2. SILDENAFIL [Concomitant]
  3. COUMADIN [Concomitant]
  4. LASIX [Concomitant]
  5. DIGOXIN [Concomitant]
  6. ACTIGALL [Concomitant]
  7. IMURAN [Concomitant]
  8. IRON [Concomitant]
  9. DAILY MULTIVITAMIN [Concomitant]

REACTIONS (4)
  - BLOOD CULTURE POSITIVE [None]
  - CATHETER RELATED INFECTION [None]
  - CELLULITIS [None]
  - STENOTROPHOMONAS INFECTION [None]
